APPROVED DRUG PRODUCT: CLONIDINE HYDROCHLORIDE
Active Ingredient: CLONIDINE HYDROCHLORIDE
Strength: 0.1MG
Dosage Form/Route: TABLET;ORAL
Application: A070974 | Product #001 | TE Code: AB
Applicant: ACTAVIS ELIZABETH LLC
Approved: Dec 16, 1986 | RLD: No | RS: No | Type: RX